FAERS Safety Report 4531421-4 (Version None)
Quarter: 2004Q4

REPORT INFORMATION
  Report Type: 
  Country: None (occurrence: None)
  Receive Date: 20041216
  Receipt Date: 20041206
  Transmission Date: 20050328
  Serious: Yes (Hospitalization, Other)
  Sender: FDA-Public Use
  Company Number: 2004-12-0323

PATIENT
  Age: 47 Year
  Sex: Female

DRUGS (12)
  1. PEG-INTRON [Suspect]
     Indication: HEPATITIS C
     Dosage: 120 MCG QWK SUBCUTANEOUS
     Route: 058
     Dates: start: 20041112
  2. RIBASPHERE [Suspect]
     Indication: HEPATITIS C
     Dosage: 1000 MG QD
     Dates: start: 20041112
  3. AMBIEN [Concomitant]
  4. GLUCOPHAGE [Concomitant]
  5. IRON TABLETS [Concomitant]
  6. LASIX [Concomitant]
  7. MILK THISTLE FRUIT CAPSULE [Concomitant]
  8. MULTI-VITAMINS [Concomitant]
  9. SYNTHROID [Concomitant]
  10. TYLENOL [Concomitant]
  11. VITAMIN E CAPSULES [Concomitant]
  12. ZOLOFT [Concomitant]

REACTIONS (3)
  - CROHN'S DISEASE [None]
  - HAEMOPTYSIS [None]
  - THROMBOSIS [None]
